FAERS Safety Report 5465195-X (Version None)
Quarter: 2007Q3

REPORT INFORMATION
  Report Type: 
  Country: None (occurrence: None)
  Receive Date: 20070920
  Receipt Date: 20070709
  Transmission Date: 20080115
  Serious: Yes (Hospitalization)
  Sender: FDA-Public Use
  Company Number: US-1163592

PATIENT
  Age: 4 Month
  Sex: Male

DRUGS (1)
  1. TOBRAMYCIN SULFATE [Suspect]
     Indication: CONJUNCTIVITIS
     Dosage: (OPTHALMIC)
     Route: 047

REACTIONS (1)
  - DACRYOSTENOSIS ACQUIRED [None]
